FAERS Safety Report 17035878 (Version 1)
Quarter: 2019Q4

REPORT INFORMATION
  Report Type: Other
  Country: CA (occurrence: CA)
  Receive Date: 20191115
  Receipt Date: 20191115
  Transmission Date: 20200122
  Serious: Yes (Other)
  Sender: FDA-Public Use
  Company Number: CA-APOTEX-2019AP024665

PATIENT
  Age: 70 Year
  Sex: Female

DRUGS (1)
  1. PENTOXIFYLLINE SR [Suspect]
     Active Substance: PENTOXIFYLLINE
     Indication: MUSCLE SPASMS
     Dosage: 400 MG, TID
     Route: 065

REACTIONS (3)
  - Rash pruritic [Recovered/Resolved]
  - Rash papular [Recovered/Resolved]
  - Discomfort [Recovered/Resolved]
